FAERS Safety Report 8218458-9 (Version None)
Quarter: 2012Q1

REPORT INFORMATION
  Report Type: 
  Country: None (occurrence: None)
  Receive Date: 20120319
  Receipt Date: 20120315
  Transmission Date: 20120608
  Serious: No
  Sender: FDA-Public Use
  Company Number: US-PFIZER INC-2012069999

PATIENT
  Sex: Female
  Weight: 64.399 kg

DRUGS (2)
  1. CHANTIX [Suspect]
     Indication: SMOKING CESSATION THERAPY
     Dosage: 0.5 MG,DAILY
     Route: 048
     Dates: start: 20120204
  2. LISINOPRIL AND HYDROCHLOROTHIAZIDE [Concomitant]
     Indication: HYPERTENSION
     Dosage: 20/12.5 MG, DAILY

REACTIONS (3)
  - MUSCULOSKELETAL STIFFNESS [None]
  - EXPIRED DRUG ADMINISTERED [None]
  - WEIGHT INCREASED [None]
